FAERS Safety Report 19447940 (Version 1)
Quarter: 2021Q2

REPORT INFORMATION
  Report Type: Spontaneous
  Country: US (occurrence: US)
  Receive Date: 20210622
  Receipt Date: 20210622
  Transmission Date: 20210717
  Serious: Yes (Life-Threatening, Hospitalization)
  Sender: FDA-Public Use
  Company Number: None

PATIENT
  Age: 39 Year
  Sex: Female
  Weight: 56.9 kg

DRUGS (10)
  1. HYDROMORPHONE 4MG [Concomitant]
     Active Substance: HYDROMORPHONE HYDROCHLORIDE
  2. PROMETHAZINE 25MG [Concomitant]
  3. OXYCODONE SR 80MG [Concomitant]
  4. METHOCARBAMOL 500MG [Concomitant]
  5. DIPHENHYDRAMINE 25MG [Concomitant]
     Active Substance: DIPHENHYDRAMINE
  6. ONDANSETRON 4MG ODT [Concomitant]
  7. FAMOTIDINE 20MG [Concomitant]
     Active Substance: FAMOTIDINE
  8. ACETAMINOPHEN 325MG [Concomitant]
  9. ADAKVEO [Suspect]
     Active Substance: CRIZANLIZUMAB-TMCA
     Indication: SICKLE CELL DISEASE
     Dosage: ?          OTHER FREQUENCY:EVERY 4 WEEKS;?
     Route: 042
     Dates: start: 20200831, end: 20210608
  10. FLUTICASONE PROPRIONATE 50MCG [Concomitant]

REACTIONS (1)
  - Anaphylactic reaction [None]

NARRATIVE: CASE EVENT DATE: 20210608
